FAERS Safety Report 22341928 (Version 3)
Quarter: 2024Q2

REPORT INFORMATION
  Report Type: Report from Study
  Country: CA (occurrence: CA)
  Receive Date: 20230518
  Receipt Date: 20240620
  Transmission Date: 20240716
  Serious: Yes (Hospitalization, Other)
  Sender: FDA-Public Use
  Company Number: CA-ABBVIE-4769353

PATIENT
  Age: 67 Year
  Sex: Male
  Weight: 57.152 kg

DRUGS (2)
  1. HUMIRA [Suspect]
     Active Substance: ADALIMUMAB
     Indication: Rheumatoid arthritis
     Route: 058
     Dates: start: 20090121, end: 20230318
  2. HUMIRA [Suspect]
     Active Substance: ADALIMUMAB
     Route: 058
     Dates: start: 20230608

REACTIONS (7)
  - Haematotoxicity [Unknown]
  - Joint space narrowing [Unknown]
  - Staphylococcal infection [Recovered/Resolved]
  - Knee arthroplasty [Unknown]
  - Osteoarthritis [Unknown]
  - Fibula fracture [Unknown]
  - Procedural failure [Unknown]

NARRATIVE: CASE EVENT DATE: 20230313
